FAERS Safety Report 10789782 (Version 1)
Quarter: 2015Q1

REPORT INFORMATION
  Report Type: Spontaneous
  Country: US (occurrence: None)
  Receive Date: 20150211
  Receipt Date: 20150211
  Transmission Date: 20150721
  Serious: No
  Sender: FDA-Public Use
  Company Number: None

PATIENT
  Age: 34 Year
  Sex: Female
  Weight: 54.43 kg

DRUGS (1)
  1. DEXTROAMP-AMPHET ER 15 MG ACTAVIS EL [Suspect]
     Active Substance: AMPHETAMINE\DEXTROAMPHETAMINE
     Indication: ATTENTION DEFICIT/HYPERACTIVITY DISORDER
     Dosage: 1 PILL ONCE DAILY TAKEN BY MOUTH
     Route: 048
     Dates: start: 20150118, end: 20150205

REACTIONS (9)
  - Pharyngeal oedema [None]
  - Tremor [None]
  - Irritability [None]
  - Headache [None]
  - Crying [None]
  - Odynophagia [None]
  - Mood altered [None]
  - Fatigue [None]
  - Heart rate increased [None]

NARRATIVE: CASE EVENT DATE: 20150131
